FAERS Safety Report 7300704-7 (Version None)
Quarter: 2011Q1

REPORT INFORMATION
  Report Type: 
  Country: None (occurrence: None)
  Receive Date: 20110103
  Receipt Date: 20100319
  Transmission Date: 20110831
  Serious: Yes (Hospitalization)
  Sender: FDA-Public Use
  Company Number: US-004222

PATIENT
  Age: 46 Year
  Sex: Female

DRUGS (7)
  1. PANTOPRAZOLE SODIUM [Concomitant]
  2. PROVIGIL [Concomitant]
  3. ENOXAPRIN (ENOXAPARIN) [Concomitant]
  4. PROHANCE [Suspect]
     Indication: MULTIPLE SCLEROSIS
     Dosage: 8ML ONCE INTRAVENOUS
     Route: 042
     Dates: start: 20100319, end: 20100319
  5. PROHANCE [Suspect]
     Indication: NUCLEAR MAGNETIC RESONANCE IMAGING BRAIN
     Dosage: 8ML ONCE INTRAVENOUS
     Route: 042
     Dates: start: 20100319, end: 20100319
  6. PROPOFOL [Concomitant]
  7. VITAMIN B12 (VITAMIN B12 NOS) [Concomitant]

REACTIONS (1)
  - ANAPHYLACTIC SHOCK [None]
